FAERS Safety Report 9735276 (Version 1)
Quarter: 2013Q4

REPORT INFORMATION
  Report Type: Spontaneous
  Country: BR (occurrence: BR)
  Receive Date: 20131206
  Receipt Date: 20131206
  Transmission Date: 20140711
  Serious: Yes (Other)
  Sender: FDA-Public Use
  Company Number: BR-SA-2013SA124634

PATIENT
  Age: 58 Year
  Sex: Female
  Weight: 61 kg

DRUGS (7)
  1. LANTUS [Suspect]
     Indication: TYPE 2 DIABETES MELLITUS
     Route: 058
  2. FOLACIN [Concomitant]
     Indication: FOLATE DEFICIENCY
     Route: 048
     Dates: start: 2010
  3. CLOPIDOGREL [Concomitant]
     Indication: ANTICOAGULANT THERAPY
     Dates: start: 2011
  4. NORVASC [Concomitant]
     Indication: BLOOD PRESSURE
     Dates: start: 2012
  5. VALSARTAN [Concomitant]
     Indication: BLOOD PRESSURE
  6. JANUMET [Concomitant]
     Indication: DIABETES MELLITUS
  7. CALTRATE +D [Concomitant]
     Indication: MINERAL SUPPLEMENTATION

REACTIONS (5)
  - Pericarditis [Recovered/Resolved]
  - Pyrexia [Recovered/Resolved]
  - Malaise [Recovered/Resolved]
  - Off label use [Unknown]
  - Pain in extremity [Recovering/Resolving]
